FAERS Safety Report 25292223 (Version 6)
Quarter: 2025Q4

REPORT INFORMATION
  Report Type: Spontaneous
  Country: US (occurrence: US)
  Receive Date: 20250510
  Receipt Date: 20251103
  Transmission Date: 20260117
  Serious: Yes (Other)
  Sender: SANOFI AVENTIS
  Company Number: US-SA-2025SA122244

PATIENT
  Age: 58 Year
  Sex: Female

DRUGS (1)
  1. DUPIXENT [Suspect]
     Active Substance: DUPILUMAB
     Indication: Asthma
     Dosage: 300 MG, QOW
     Route: 058
     Dates: start: 202502

REACTIONS (12)
  - Burns fourth degree [Unknown]
  - Pain [Unknown]
  - Seasonal allergy [Unknown]
  - Sciatica [Unknown]
  - Viral infection [Recovered/Resolved]
  - Oropharyngeal pain [Recovered/Resolved]
  - Headache [Unknown]
  - Asthma [Unknown]
  - Rebound effect [Unknown]
  - Product dose omission issue [Unknown]
  - Therapeutic response shortened [Unknown]
  - Inappropriate schedule of product administration [Unknown]

NARRATIVE: CASE EVENT DATE: 20250101
